FAERS Safety Report 25022119 (Version 2)
Quarter: 2025Q3

REPORT INFORMATION
  Report Type: Spontaneous
  Country: US (occurrence: US)
  Receive Date: 20250228
  Receipt Date: 20250816
  Transmission Date: 20251020
  Serious: No
  Sender: ALEXION PHARMACEUTICALS
  Company Number: US-ASTRAZENECA-202410USA020848US

PATIENT

DRUGS (1)
  1. AIRSUPRA [Suspect]
     Active Substance: ALBUTEROL SULFATE\BUDESONIDE

REACTIONS (6)
  - Insomnia [Unknown]
  - Sinusitis [Unknown]
  - Olfactory test [Unknown]
  - Inflammation [Unknown]
  - Mania [Unknown]
  - Weight increased [Unknown]
